FAERS Safety Report 23256254 (Version 1)
Quarter: 2023Q4

REPORT INFORMATION
  Report Type: Spontaneous
  Country: GB (occurrence: GB)
  Receive Date: 20231204
  Receipt Date: 20231204
  Transmission Date: 20240110
  Serious: Yes (Life-Threatening, Hospitalization, Other)
  Sender: FDA-Public Use
  Company Number: None

PATIENT
  Age: 85 Year
  Sex: Male
  Weight: 65 kg

DRUGS (3)
  1. DASATINIB [Suspect]
     Active Substance: DASATINIB
     Indication: Chronic myeloid leukaemia
     Dosage: INCREASED TO 100MG OD ON 11/11/23 BUT I THINK THIS IS CYCLE 3 POSSIBLY
     Dates: start: 20231111
  2. CLOPIDOGREL [Suspect]
     Active Substance: CLOPIDOGREL BISULFATE
     Indication: Percutaneous coronary intervention
     Dosage: POSSIBLY STARTED AT NBT IN THE LAST MONTH OR TWO - 75MG OD; ;
  3. EDOXABAN [Suspect]
     Active Substance: EDOXABAN
     Indication: Atrial fibrillation
     Dates: start: 20231101, end: 20231128

REACTIONS (1)
  - Upper gastrointestinal haemorrhage [Not Recovered/Not Resolved]

NARRATIVE: CASE EVENT DATE: 20231129
